FAERS Safety Report 10223160 (Version 2)
Quarter: 2014Q2

REPORT INFORMATION
  Report Type: Spontaneous
  Country: JP (occurrence: JP)
  Receive Date: 20140608
  Receipt Date: 20140615
  Transmission Date: 20141212
  Serious: No
  Sender: FDA-Public Use
  Company Number: PHHY2014JP068613

PATIENT
  Age: 21 Year
  Sex: Female

DRUGS (3)
  1. TASIGNA [Suspect]
     Indication: CHRONIC MYELOID LEUKAEMIA
     Dosage: 400 MG, DAILY
     Route: 048
     Dates: start: 20130403
  2. TASIGNA [Suspect]
     Dosage: 450 MG, QD
     Route: 048
  3. TASIGNA [Suspect]
     Dosage: 550 MG, QD
     Route: 048
     Dates: start: 20140509

REACTIONS (2)
  - Therapeutic response decreased [Not Recovered/Not Resolved]
  - Overdose [Not Recovered/Not Resolved]
